FAERS Safety Report 7973709-0 (Version None)
Quarter: 2011Q4

REPORT INFORMATION
  Report Type: 
  Country: None (occurrence: None)
  Receive Date: 20111213
  Receipt Date: 20111213
  Transmission Date: 20120403
  Serious: No
  Sender: FDA-Public Use
  Company Number: None

PATIENT
  Age: 58 Year
  Sex: Female
  Weight: 60.327 kg

DRUGS (1)
  1. PIROXICAM [Suspect]
     Indication: ANTIINFLAMMATORY THERAPY
     Dosage: 1
     Route: 048
     Dates: start: 20111208, end: 20111209

REACTIONS (9)
  - GLOSSODYNIA [None]
  - NASAL DISCOMFORT [None]
  - PAROSMIA [None]
  - EAR DISCOMFORT [None]
  - THROAT IRRITATION [None]
  - SWOLLEN TONGUE [None]
  - NASAL DRYNESS [None]
  - HEADACHE [None]
  - DYSPHAGIA [None]
